FAERS Safety Report 11150362 (Version 1)
Quarter: 2015Q2

REPORT INFORMATION
  Report Type: Spontaneous
  Country: IE (occurrence: IE)
  Receive Date: 20150531
  Receipt Date: 20150531
  Transmission Date: 20150821
  Serious: Yes (Hospitalization, Other)
  Sender: FDA-Public Use
  Company Number: IE-MYLANLABS-2015M1017891

PATIENT

DRUGS (2)
  1. EPINEPHRINE. [Suspect]
     Active Substance: EPINEPHRINE
     Dosage: 1 IN 1000
     Route: 061
  2. COCAINE [Interacting]
     Active Substance: COCAINE
     Dosage: 4%
     Route: 061

REACTIONS (2)
  - Myocardial ischaemia [Recovered/Resolved]
  - Drug interaction [Recovered/Resolved]
